FAERS Safety Report 6193412-X (Version None)
Quarter: 2009Q2

REPORT INFORMATION
  Report Type: 
  Country: None (occurrence: None)
  Receive Date: 20090518
  Receipt Date: 20080623
  Transmission Date: 20091009
  Serious: No
  Sender: FDA-Public Use
  Company Number: US-ABBOTT-08P-163-0459093-00

PATIENT
  Sex: Male
  Weight: 118.04 kg

DRUGS (5)
  1. AZMACORT [Suspect]
     Indication: LARYNGEAL OEDEMA
     Dosage: 240 METER DOSE INHALER
     Route: 055
     Dates: start: 20080601
  2. AZMACORT [Suspect]
     Indication: GASTROOESOPHAGEAL REFLUX DISEASE
  3. RABEPRAZOLE SODIUM [Concomitant]
     Indication: GASTROOESOPHAGEAL REFLUX DISEASE
     Route: 048
  4. ATENOLOL [Concomitant]
     Indication: HYPERTENSION
     Route: 048
  5. DYAZIDE [Concomitant]
     Indication: HYPERTENSION
     Dosage: 75/50 MG, 1/2 TAB DAILY
     Route: 048

REACTIONS (1)
  - UNDERDOSE [None]
